FAERS Safety Report 7751325-3 (Version None)
Quarter: 2011Q3

REPORT INFORMATION
  Report Type: 
  Country: None (occurrence: None)
  Receive Date: 20110914
  Receipt Date: 20110909
  Transmission Date: 20111222
  Serious: Yes (Other)
  Sender: FDA-Public Use
  Company Number: CHPA2011US11506

PATIENT
  Age: 62 Year
  Sex: Female

DRUGS (7)
  1. EXCEDRIN (MIGRAINE) [Suspect]
     Indication: ARTHRALGIA
     Dosage: 2 DF, BID
     Route: 048
     Dates: start: 20110601
  2. ASPIRIN [Suspect]
     Indication: PAIN
     Dosage: 2 DF, Q8H, FOR 2 OR 3 DAYS
     Route: 048
     Dates: start: 20110701, end: 20110701
  3. SYNTHROID [Concomitant]
     Indication: HYPOTHYROIDISM
     Dosage: 0.125 UG, QD
     Route: 048
     Dates: start: 19930101
  4. PREDNISONE [Concomitant]
     Indication: ARTHRALGIA
     Dosage: TAPERED DOSE X 10 DAYS
     Route: 048
     Dates: start: 20110501, end: 20110501
  5. PREDNISONE [Concomitant]
     Indication: BACK PAIN
  6. EXCEDRIN (MIGRAINE) [Suspect]
     Indication: BACK PAIN
  7. ESTRADIOL [Concomitant]
     Indication: OESTROGEN REPLACEMENT THERAPY
     Dosage: 1 MG, QD
     Route: 048

REACTIONS (9)
  - EPSTEIN-BARR VIRUS INFECTION [None]
  - THERAPEUTIC RESPONSE UNEXPECTED [None]
  - INSOMNIA [None]
  - OFF LABEL USE [None]
  - ABDOMINAL DISCOMFORT [None]
  - FATIGUE [None]
  - BURNING SENSATION [None]
  - INFLUENZA LIKE ILLNESS [None]
  - CYTOMEGALOVIRUS INFECTION [None]
